FAERS Safety Report 4409750-4 (Version None)
Quarter: 2004Q3

REPORT INFORMATION
  Report Type: 
  Country: None (occurrence: None)
  Receive Date: 20040727
  Receipt Date: 20040727
  Transmission Date: 20050211
  Serious: Yes (Hospitalization)
  Sender: FDA-Public Use
  Company Number: None

PATIENT
  Age: 49 Year
  Sex: Female

DRUGS (7)
  1. SOTALOL HCL [Suspect]
     Indication: ARRHYTHMIA
     Dosage: 80MG  B.I.D.  ORAL
     Route: 048
     Dates: start: 20040427, end: 20040428
  2. FUROSEMIDE [Concomitant]
  3. WARFARIN SODIUM [Concomitant]
  4. PANTOPRAZOLE [Concomitant]
  5. ALBUTEROL/IPRATROPIUM INHALATION [Concomitant]
  6. POTASSIUM CHLORIDE [Concomitant]
  7. INSULIN SLIDING SCALE [Concomitant]

REACTIONS (2)
  - TORSADE DE POINTES [None]
  - VENTRICULAR TACHYCARDIA [None]
